FAERS Safety Report 4797442-1 (Version None)
Quarter: 2005Q4

REPORT INFORMATION
  Report Type: 
  Country: None (occurrence: None)
  Receive Date: 20051006
  Receipt Date: 20051006
  Transmission Date: 20060501
  Serious: Yes (Hospitalization)
  Sender: FDA-Public Use
  Company Number: None

PATIENT
  Age: 58 Year
  Sex: Female
  Weight: 52 kg

DRUGS (6)
  1. HEPARIN [Suspect]
     Indication: THROMBOSIS PROPHYLAXIS
     Dosage: 5, 000 UNITS SQ Q12H
     Route: 058
     Dates: start: 20050519, end: 20050529
  2. HEPARIN [Suspect]
     Indication: ACUTE MYOCARDIAL INFARCTION
     Dosage: 600 UNITS/HR
     Dates: start: 20050530, end: 20050603
  3. VANCOMYCIN [Concomitant]
  4. AMINDARONE [Concomitant]
  5. ASPIRIN [Concomitant]
  6. WARFARIN [Concomitant]

REACTIONS (2)
  - HEPARIN-INDUCED THROMBOCYTOPENIA [None]
  - PLATELET COUNT DECREASED [None]
